FAERS Safety Report 19349854 (Version 1)
Quarter: 2021Q2

REPORT INFORMATION
  Report Type: Spontaneous
  Country: US (occurrence: US)
  Receive Date: 20210529
  Receipt Date: 20210529
  Transmission Date: 20210717
  Serious: No
  Sender: FDA-Public Use
  Company Number: None

PATIENT
  Age: 45 Year
  Sex: Male

DRUGS (1)
  1. HUMIRA [Suspect]
     Active Substance: ADALIMUMAB
     Indication: PSORIASIS
     Dosage: ?          OTHER DOSE:40M/0.4ML;?
     Route: 058
     Dates: start: 20210521

REACTIONS (3)
  - Wrong technique in device usage process [None]
  - Device leakage [None]
  - Drug dose omission by device [None]

NARRATIVE: CASE EVENT DATE: 20210521
